FAERS Safety Report 20215195 (Version 2)
Quarter: 2022Q1

REPORT INFORMATION
  Report Type: Spontaneous
  Country: US (occurrence: US)
  Receive Date: 20211222
  Receipt Date: 20220213
  Transmission Date: 20220423
  Serious: Yes (Other)
  Sender: FDA-Public Use
  Company Number: US-AMGEN-USASP2021199957

PATIENT
  Age: 63 Year
  Sex: Female

DRUGS (13)
  1. PROLIA [Suspect]
     Active Substance: DENOSUMAB
     Indication: Product used for unknown indication
     Dosage: UNK
     Route: 065
  2. MYCOPHENOLIC ACID [Concomitant]
     Active Substance: MYCOPHENOLIC ACID
     Indication: Systemic lupus erythematosus
  3. MYCOPHENOLIC ACID [Concomitant]
     Active Substance: MYCOPHENOLIC ACID
     Indication: Cutaneous vasculitis
  4. OMEPRAZOLE [Concomitant]
     Active Substance: OMEPRAZOLE
  5. NIFEDIPINE [Concomitant]
     Active Substance: NIFEDIPINE
  6. AMLODIPINE [Concomitant]
     Active Substance: AMLODIPINE BESYLATE
  7. CALCIUM [Concomitant]
     Active Substance: CALCIUM
  8. ERGOCALCIFEROL [Concomitant]
     Active Substance: ERGOCALCIFEROL
  9. DULOXETINE [Concomitant]
     Active Substance: DULOXETINE
  10. LOSARTAN [Concomitant]
     Active Substance: LOSARTAN
  11. PIOGLITAZONE [Concomitant]
     Active Substance: PIOGLITAZONE
  12. SIMVASTATIN [Concomitant]
     Active Substance: SIMVASTATIN
  13. METFORMIN [Concomitant]
     Active Substance: METFORMIN HYDROCHLORIDE

REACTIONS (1)
  - COVID-19 [Recovered/Resolved]
